FAERS Safety Report 10736743 (Version 1)
Quarter: 2015Q1

REPORT INFORMATION
  Report Type: Spontaneous
  Country: US (occurrence: US)
  Receive Date: 20150126
  Receipt Date: 20150126
  Transmission Date: 20150721
  Serious: Yes (Death)
  Sender: FDA-Public Use
  Company Number: US-ABBVIE-15P-163-1337093-00

PATIENT
  Sex: Male

DRUGS (2)
  1. DEPO-TESTOSTERONE [Concomitant]
     Active Substance: TESTOSTERONE CYPIONATE
     Indication: BLOOD TESTOSTERONE DECREASED
     Dosage: AS PRESCRIBED BY PRIMARY CARE PHYSICIAN
     Route: 065
     Dates: end: 20140306
  2. ANDROGEL [Suspect]
     Active Substance: TESTOSTERONE
     Indication: BLOOD TESTOSTERONE DECREASED
     Dosage: AS PRESCRIBED BY PRIMARY CARE PHYSICIAN
     Route: 062
     Dates: end: 20140306

REACTIONS (15)
  - Pain [Unknown]
  - Pulmonary embolism [Fatal]
  - Injury [Unknown]
  - Deep vein thrombosis [Unknown]
  - Fear [Unknown]
  - Myocardial infarction [Fatal]
  - Cardiovascular disorder [Unknown]
  - Social problem [Unknown]
  - Anxiety [Unknown]
  - Lung disorder [Unknown]
  - Economic problem [Unknown]
  - Impaired work ability [Unknown]
  - Emotional distress [Unknown]
  - Vein disorder [Unknown]
  - Anhedonia [Unknown]

NARRATIVE: CASE EVENT DATE: 20140319
